FAERS Safety Report 6140818-0 (Version None)
Quarter: 2009Q2

REPORT INFORMATION
  Report Type: 
  Country: None (occurrence: None)
  Receive Date: 20090402
  Receipt Date: 20090330
  Transmission Date: 20091009
  Serious: Yes (Death)
  Sender: FDA-Public Use
  Company Number: CA-ROXANE LABORATORIES, INC.-2009-RO-00306RO

PATIENT
  Age: 2 Year

DRUGS (2)
  1. MORPHINE [Suspect]
     Indication: PALLIATIVE CARE
  2. LORAZEPAM [Concomitant]

REACTIONS (1)
  - DEATH [None]
